FAERS Safety Report 5811221-5 (Version None)
Quarter: 2008Q3

REPORT INFORMATION
  Report Type: 
  Country: None (occurrence: None)
  Receive Date: 20080710
  Receipt Date: 20080703
  Transmission Date: 20090109
  Serious: Yes (Hospitalization)
  Sender: FDA-Public Use
  Company Number: 6044082

PATIENT
  Age: 87 Year
  Sex: Female

DRUGS (6)
  1. EMCONCOR (TABLET) (BISOPROLOL FUMARATE) [Suspect]
     Indication: HYPERTENSION
     Dosage: (10 MG) ORAL
     Route: 048
     Dates: end: 20080404
  2. LERCADIP (LERCANIDIPINE) [Concomitant]
  3. LORAZEPAM [Concomitant]
  4. MICARDIS PLUS (HYDROCHLOROTHIAZIDE, TELMISARTAN) [Concomitant]
  5. OMEPRAZOLE [Concomitant]
  6. FEXOFENADINE HCL [Concomitant]

REACTIONS (1)
  - ATRIOVENTRICULAR BLOCK SECOND DEGREE [None]
